FAERS Safety Report 19485360 (Version 1)
Quarter: 2021Q3

REPORT INFORMATION
  Report Type: Spontaneous
  Country: CA (occurrence: CA)
  Receive Date: 20210702
  Receipt Date: 20210702
  Transmission Date: 20211014
  Serious: Yes (Hospitalization)
  Sender: FDA-Public Use
  Company Number: CA-ROCHE-2860272

PATIENT
  Age: 78 Year
  Sex: Male

DRUGS (8)
  1. ALFUZOSIN [Concomitant]
     Active Substance: ALFUZOSIN
  2. CALCIUM [Concomitant]
     Active Substance: CALCIUM
  3. DUTASTERIDE. [Concomitant]
     Active Substance: DUTASTERIDE
  4. RISEDRONATE SODIUM. [Concomitant]
     Active Substance: RISEDRONATE SODIUM
  5. PREDNISONE. [Concomitant]
     Active Substance: PREDNISONE
  6. XARELTO [Concomitant]
     Active Substance: RIVAROXABAN
     Dosage: COATED TABLET
  7. MYCOPHENOLATE MOFETIL. [Suspect]
     Active Substance: MYCOPHENOLATE MOFETIL
     Indication: GRANULOMATOSIS WITH POLYANGIITIS
     Route: 065
  8. RITUXIMAB. [Suspect]
     Active Substance: RITUXIMAB
     Indication: GRANULOMATOSIS WITH POLYANGIITIS
     Route: 065

REACTIONS (4)
  - Off label use [Unknown]
  - Pneumonia [Not Recovered/Not Resolved]
  - Product prescribing error [Unknown]
  - Intentional product use issue [Unknown]
